FAERS Safety Report 10156425 (Version 1)
Quarter: 2014Q2

REPORT INFORMATION
  Report Type: Spontaneous
  Country: US (occurrence: None)
  Receive Date: 20140506
  Receipt Date: 20140506
  Transmission Date: 20141212
  Serious: Yes (Hospitalization)
  Sender: FDA-Public Use
  Company Number: None

PATIENT
  Age: 74 Year
  Sex: Female
  Weight: 63.5 kg

DRUGS (3)
  1. MELOXICAM [Suspect]
     Indication: OSTEOARTHRITIS
     Dosage: 1 PILL
     Route: 048
     Dates: start: 20130215, end: 20130227
  2. LOSARTAN POTASSIUM [Concomitant]
  3. METFORMIN [Concomitant]

REACTIONS (10)
  - Pruritus [None]
  - Asthenia [None]
  - Erythema [None]
  - Swelling face [None]
  - Burning sensation [None]
  - Throat tightness [None]
  - Dizziness [None]
  - Malaise [None]
  - Abasia [None]
  - Malaise [None]
